FAERS Safety Report 22384826 (Version 1)
Quarter: 2023Q2

REPORT INFORMATION
  Report Type: Spontaneous
  Country: US (occurrence: US)
  Receive Date: 20230530
  Receipt Date: 20230530
  Transmission Date: 20230722
  Serious: Yes (Other)
  Sender: FDA-Public Use
  Company Number: US-BAYER-2023A074598

PATIENT
  Age: 36 Year
  Sex: Male

DRUGS (4)
  1. KOVALTRY [Suspect]
     Active Substance: ANTIHEMOPHILIC FACTOR, HUMAN RECOMBINANT
     Indication: Factor VIII deficiency
     Dosage: 3144 IU, PRN
     Route: 042
     Dates: start: 202207
  2. KOVALTRY [Suspect]
     Active Substance: ANTIHEMOPHILIC FACTOR, HUMAN RECOMBINANT
     Indication: Factor VIII deficiency
     Dosage: 3144 IU, PRN
     Route: 042
     Dates: start: 20230524, end: 20230524
  3. KOVALTRY [Suspect]
     Active Substance: ANTIHEMOPHILIC FACTOR, HUMAN RECOMBINANT
     Indication: Factor VIII deficiency
     Dosage: 3144 IU, PRN
     Route: 042
     Dates: start: 20230525, end: 20230525
  4. KOVALTRY [Suspect]
     Active Substance: ANTIHEMOPHILIC FACTOR, HUMAN RECOMBINANT
     Indication: Factor VIII deficiency
     Dosage: 3144 IU, PRN
     Route: 042
     Dates: start: 20230527, end: 20230527

REACTIONS (2)
  - Muscle haemorrhage [Not Recovered/Not Resolved]
  - Muscle injury [None]

NARRATIVE: CASE EVENT DATE: 20230523
